FAERS Safety Report 10079740 (Version 1)
Quarter: 2014Q2

REPORT INFORMATION
  Report Type: Spontaneous
  Country: US (occurrence: US)
  Receive Date: 20140415
  Receipt Date: 20140415
  Transmission Date: 20141212
  Serious: Yes (Hospitalization)
  Sender: FDA-Public Use
  Company Number: US-TEVA-475122USA

PATIENT
  Age: 84 Year
  Sex: Male
  Weight: 68.1 kg

DRUGS (2)
  1. GABITRIL [Suspect]
     Indication: NEURALGIA
     Dates: start: 20140409
  2. LYRICA [Concomitant]
     Dates: end: 20140408

REACTIONS (5)
  - Mental impairment [Not Recovered/Not Resolved]
  - Speech disorder [Not Recovered/Not Resolved]
  - Disturbance in attention [Not Recovered/Not Resolved]
  - Irritability [Not Recovered/Not Resolved]
  - Nausea [Not Recovered/Not Resolved]
